FAERS Safety Report 5698590-4 (Version None)
Quarter: 2008Q2

REPORT INFORMATION
  Report Type: 
  Country: None (occurrence: None)
  Receive Date: 20080408
  Receipt Date: 20061017
  Transmission Date: 20081010
  Serious: No
  Sender: FDA-Public Use
  Company Number: US-BAYER-US-2006-032274

PATIENT
  Age: 43 Year
  Sex: Female
  Weight: 66 kg

DRUGS (2)
  1. CLIMARA [Suspect]
     Indication: MENOPAUSAL SYMPTOMS
     Route: 062
     Dates: start: 20061001
  2. CLIMARA [Suspect]
     Route: 062
     Dates: start: 20010101

REACTIONS (5)
  - CONJUNCTIVITIS [None]
  - COUGH [None]
  - DYSPHONIA [None]
  - PRURITUS [None]
  - RASH [None]
